FAERS Safety Report 7599680-1 (Version None)
Quarter: 2011Q3

REPORT INFORMATION
  Report Type: 
  Country: None (occurrence: None)
  Receive Date: 20110711
  Receipt Date: 20110627
  Transmission Date: 20111222
  Serious: No
  Sender: FDA-Public Use
  Company Number: JP-ELI_LILLY_AND_COMPANY-JP201105003607

PATIENT
  Sex: Female
  Weight: 50 kg

DRUGS (4)
  1. RISPERDAL [Concomitant]
     Dosage: 3 MG, QD
     Dates: start: 20110209
  2. PHENOBARBITAL TAB [Concomitant]
     Dosage: 1 DF, QD
     Route: 048
     Dates: start: 20110209, end: 20110505
  3. ZYPREXA [Suspect]
     Dosage: 20 MG, QD
     Route: 048
     Dates: start: 20110329, end: 20110505
  4. ZYPREXA [Suspect]
     Indication: SCHIZOPHRENIA
     Dosage: 10 MG, QD
     Route: 048
     Dates: start: 20110326, end: 20110328

REACTIONS (1)
  - GRANULOCYTE COUNT DECREASED [None]
